FAERS Safety Report 8312905-X (Version None)
Quarter: 2012Q2

REPORT INFORMATION
  Report Type: 
  Country: None (occurrence: None)
  Receive Date: 20120424
  Receipt Date: 20120411
  Transmission Date: 20120825
  Serious: Yes (Hospitalization)
  Sender: FDA-Public Use
  Company Number: 1204-183

PATIENT
  Age: 94 Year
  Sex: Female

DRUGS (9)
  1. OSCAL (CALCIUM CARBONATE) [Concomitant]
  2. ACETAMINOPHEN [Concomitant]
  3. LISINOPRIL [Concomitant]
  4. FUROSEMIDE [Concomitant]
  5. VITAMIN D [Concomitant]
  6. OMEPRAZOLE [Concomitant]
  7. EYLEA [Suspect]
     Dosage: INTRAVITREAL
  8. CRESTOR [Concomitant]
  9. ASCORBIC ACID [Concomitant]

REACTIONS (1)
  - HAEMORRHAGE [None]
